FAERS Safety Report 5201562-7 (Version None)
Quarter: 2007Q1

REPORT INFORMATION
  Report Type: 
  Country: None (occurrence: None)
  Receive Date: 20070108
  Receipt Date: 20061227
  Transmission Date: 20070707
  Serious: Yes (Other)
  Sender: FDA-Public Use
  Company Number: US-PFIZER INC-2007000364

PATIENT
  Sex: Female
  Weight: 54.4 kg

DRUGS (9)
  1. ZYVOX [Suspect]
     Indication: STAPHYLOCOCCAL INFECTION
     Route: 042
  2. ZYVOX [Suspect]
     Indication: STAPHYLOCOCCAL INFECTION
     Route: 042
     Dates: start: 20061201, end: 20061201
  3. NYSTATIN [Suspect]
  4. WASHING AGENT [Suspect]
  5. LEVOTHROID [Concomitant]
  6. LISINOPRIL [Concomitant]
  7. PROTOSTAT [Concomitant]
  8. VANCOMYCIN [Concomitant]
  9. NYSTATIN [Concomitant]

REACTIONS (9)
  - BLOOD CREATININE ABNORMAL [None]
  - DYSPNOEA [None]
  - GLOSSODYNIA [None]
  - HAEMOGLOBIN ABNORMAL [None]
  - LIP SWELLING [None]
  - PLATELET COUNT ABNORMAL [None]
  - STOMATITIS [None]
  - SWOLLEN TONGUE [None]
  - WHITE BLOOD CELL DISORDER [None]
